FAERS Safety Report 6111693-5 (Version None)
Quarter: 2009Q1

REPORT INFORMATION
  Report Type: 
  Country: None (occurrence: None)
  Receive Date: 20090311
  Receipt Date: 20090226
  Transmission Date: 20090719
  Serious: Yes (Other)
  Sender: FDA-Public Use
  Company Number: JP-ROCHE-616398

PATIENT
  Sex: Female
  Weight: 66 kg

DRUGS (10)
  1. PEGASYS [Suspect]
     Indication: HEPATITIS C
     Route: 058
     Dates: start: 20080902, end: 20080906
  2. PEGASYS [Suspect]
     Route: 058
     Dates: start: 20080922, end: 20081007
  3. PEGASYS [Suspect]
     Route: 058
     Dates: start: 20081014, end: 20090210
  4. COPEGUS [Suspect]
     Indication: HEPATITIS C
     Route: 048
     Dates: start: 20080902, end: 20090216
  5. URSODESOXYCHOLIC ACID [Concomitant]
     Route: 048
     Dates: start: 19980308
  6. DIGOSIN [Concomitant]
     Route: 048
     Dates: start: 20001211
  7. COMELIAN [Concomitant]
     Route: 048
     Dates: start: 20040708
  8. GLUFAST [Concomitant]
     Route: 048
     Dates: start: 20071220, end: 20090217
  9. BUFFERIN [Concomitant]
     Route: 048
     Dates: start: 20080426
  10. TEPRENONE [Concomitant]
     Route: 048
     Dates: start: 20080426

REACTIONS (1)
  - NEPHROTIC SYNDROME [None]
